FAERS Safety Report 18917127 (Version 2)
Quarter: 2021Q1

REPORT INFORMATION
  Report Type: Spontaneous
  Country: IT (occurrence: IT)
  Receive Date: 20210219
  Receipt Date: 20210226
  Transmission Date: 20210420
  Serious: Yes (Life-Threatening, Hospitalization, Other)
  Sender: FDA-Public Use
  Company Number: NVSC2021IT039951

PATIENT
  Age: 20 Year
  Sex: Female
  Weight: 78 kg

DRUGS (1)
  1. PARACETAMOL [Suspect]
     Active Substance: ACETAMINOPHEN
     Indication: PRODUCT USED FOR UNKNOWN INDICATION
     Dosage: 8 G, QD, CHRONIC
     Route: 048

REACTIONS (8)
  - Product administration error [Unknown]
  - Accidental overdose [Unknown]
  - Hepatic encephalopathy [Recovering/Resolving]
  - Hepatotoxicity [Recovering/Resolving]
  - Hepatic necrosis [Recovering/Resolving]
  - Hyperbilirubinaemia [Recovering/Resolving]
  - Jaundice [Recovering/Resolving]
  - Acute hepatic failure [Recovering/Resolving]
